FAERS Safety Report 5584035-1 (Version None)
Quarter: 2008Q1

REPORT INFORMATION
  Report Type: 
  Country: None (occurrence: None)
  Receive Date: 20080104
  Receipt Date: 20080104
  Transmission Date: 20080703
  Serious: Yes (Death)
  Sender: FDA-Public Use
  Company Number: None

PATIENT
  Age: 69 Year
  Sex: Male

DRUGS (2)
  1. FORTAZ [Suspect]
  2. ZYVOX [Suspect]

REACTIONS (3)
  - CARDIAC VALVE VEGETATION [None]
  - PANCYTOPENIA [None]
  - POST PROCEDURAL COMPLICATION [None]
